FAERS Safety Report 8165996-3 (Version None)
Quarter: 2012Q1

REPORT INFORMATION
  Report Type: 
  Country: None (occurrence: None)
  Receive Date: 20120227
  Receipt Date: 20110127
  Transmission Date: 20120608
  Serious: No
  Sender: FDA-Public Use
  Company Number: US-MYLANLABS-2011S1001972

PATIENT
  Age: 49 Year
  Sex: Female

DRUGS (5)
  1. WELLBUTRIN [Concomitant]
     Indication: DEPRESSION
     Route: 048
  2. IRON /00023503/ [Concomitant]
     Indication: ANAEMIA
     Route: 048
     Dates: start: 19990101
  3. SINGULAIR [Concomitant]
     Indication: MULTIPLE ALLERGIES
  4. CLARAVIS [Suspect]
     Route: 048
     Dates: start: 20101101, end: 20101228
  5. AMNESTEEM [Suspect]
     Indication: ACNE
     Route: 048
     Dates: start: 20101201, end: 20101228

REACTIONS (3)
  - MENOMETRORRHAGIA [None]
  - ANAEMIA [None]
  - BACK PAIN [None]
